FAERS Safety Report 4425077-9 (Version None)
Quarter: 2004Q3

REPORT INFORMATION
  Report Type: 
  Country: None (occurrence: None)
  Receive Date: 20040813
  Receipt Date: 20010417
  Transmission Date: 20050211
  Serious: Yes (Other)
  Sender: FDA-Public Use
  Company Number: JP-BRISTOL-MYERS SQUIBB COMPANY-12668323

PATIENT
  Age: 52 Year
  Sex: Male

DRUGS (3)
  1. ENDOXAN [Suspect]
     Indication: LYMPHOMA
     Route: 042
     Dates: start: 19960805, end: 19960806
  2. ETOPOSIDE [Suspect]
     Indication: LYMPHOMA
     Route: 042
     Dates: start: 19960806, end: 19960808
  3. UROMITEXAN [Concomitant]
     Indication: PROPHYLAXIS
     Route: 042
     Dates: start: 19960805, end: 19960806

REACTIONS (2)
  - HEPATIC FUNCTION ABNORMAL [None]
  - PANCYTOPENIA [None]
